FAERS Safety Report 11646501 (Version 2)
Quarter: 2016Q2

REPORT INFORMATION
  Report Type: Spontaneous
  Country: US (occurrence: US)
  Receive Date: 20151020
  Receipt Date: 20160429
  Transmission Date: 20160815
  Serious: No
  Sender: FDA-Public Use
  Company Number: US-ROCHE-1623847

PATIENT
  Age: 65 Year
  Sex: Female

DRUGS (9)
  1. QVAR [Concomitant]
     Active Substance: BECLOMETHASONE DIPROPIONATE
  2. TRAMADOL. [Concomitant]
     Active Substance: TRAMADOL
  3. SULINDAC. [Concomitant]
     Active Substance: SULINDAC
  4. PREDNISONE. [Concomitant]
     Active Substance: PREDNISONE
  5. ESBRIET [Suspect]
     Active Substance: PIRFENIDONE
     Indication: INTERSTITIAL LUNG DISEASE
     Route: 048
     Dates: start: 20150406
  6. ALENDRONATE [Concomitant]
     Active Substance: ALENDRONATE SODIUM
  7. CEPHALEXIN. [Concomitant]
     Active Substance: CEPHALEXIN
  8. CITALOPRAM [Concomitant]
     Active Substance: CITALOPRAM HYDROBROMIDE
  9. BESIVANCE [Concomitant]
     Active Substance: BESIFLOXACIN

REACTIONS (4)
  - Rash [Not Recovered/Not Resolved]
  - Photosensitivity reaction [Not Recovered/Not Resolved]
  - Abdominal pain upper [Not Recovered/Not Resolved]
  - Sunburn [Recovered/Resolved]

NARRATIVE: CASE EVENT DATE: 201508
